FAERS Safety Report 4559783-2 (Version None)
Quarter: 2005Q1

REPORT INFORMATION
  Report Type: 
  Country: None (occurrence: None)
  Receive Date: 20050107
  Receipt Date: 20040116
  Transmission Date: 20050727
  Serious: Yes (Other)
  Sender: FDA-Public Use
  Company Number: HQWYE472019JAN04

PATIENT
  Age: 87 Year
  Sex: Female
  Weight: 45.4 kg

DRUGS (2)
  1. CORDARONE [Suspect]
     Indication: ARRHYTHMIA
     Dosage: UNSPECIFIED, ORAL
     Route: 048
     Dates: start: 20040105, end: 20040113
  2. SYNTHROID [Concomitant]

REACTIONS (2)
  - ASTHENIA [None]
  - THYROID FUNCTION TEST ABNORMAL [None]
